FAERS Safety Report 9894632 (Version 1)
Quarter: 2014Q1

REPORT INFORMATION
  Report Type: Spontaneous
  Country: TR (occurrence: TR)
  Receive Date: 20140213
  Receipt Date: 20140213
  Transmission Date: 20141002
  Serious: Yes (Other)
  Sender: FDA-Public Use
  Company Number: PHHY2014TR017622

PATIENT
  Age: 36 Year
  Sex: Male

DRUGS (3)
  1. TEGRETOL [Suspect]
     Indication: EPILEPSY
     Dosage: 400 MG, BID
     Route: 048
  2. TEGRETOL [Suspect]
     Dosage: 800 MG (200 MG 4 TABLETS)
     Route: 048
     Dates: start: 20140205
  3. DEPAKIN [Concomitant]
     Indication: EPILEPSY
     Dosage: 1500 MG (500 MG X3)
     Dates: start: 2000

REACTIONS (5)
  - Vertigo [Recovered/Resolved]
  - Overdose [Recovered/Resolved]
  - Convulsion [Recovered/Resolved]
  - Dysphagia [Recovered/Resolved]
  - Drug dispensing error [Not Recovered/Not Resolved]
